FAERS Safety Report 12867282 (Version 1)
Quarter: 2016Q4

REPORT INFORMATION
  Report Type: Spontaneous
  Country: FR (occurrence: FR)
  Receive Date: 20161020
  Receipt Date: 20161020
  Transmission Date: 20170207
  Serious: Yes (Death)
  Sender: FDA-Public Use
  Company Number: FR-GUERBET LLC-1058582

PATIENT
  Age: 50 Year
  Sex: Male

DRUGS (7)
  1. CISPLATIN. [Suspect]
     Active Substance: CISPLATIN
     Route: 041
     Dates: start: 20160908, end: 20160908
  2. CISPLATIN. [Suspect]
     Active Substance: CISPLATIN
     Route: 041
     Dates: start: 20160909, end: 20160909
  3. HYDROCHLOROTHIAZIDE, OLMESARTAN MEDOXIMIL [Concomitant]
  4. ONDANSETRON [Concomitant]
     Active Substance: ONDANSETRON
     Dates: start: 20160908, end: 20160909
  5. METHYLPREDNISOLONE SODIUM SUCCINATE. [Concomitant]
     Active Substance: METHYLPREDNISOLONE SODIUM SUCCINATE
     Dates: start: 20160908, end: 20160909
  6. ALIMTA [Suspect]
     Active Substance: PEMETREXED DISODIUM
     Route: 041
     Dates: start: 20160908, end: 20160908
  7. DOTAREM [Suspect]
     Active Substance: GADOTERATE MEGLUMINE
     Indication: PRODUCT USED FOR UNKNOWN INDICATION
     Route: 042
     Dates: start: 20160915, end: 20160915

REACTIONS (4)
  - Nausea [Fatal]
  - Acute kidney injury [Fatal]
  - Vomiting [Fatal]
  - Pancytopenia [Fatal]

NARRATIVE: CASE EVENT DATE: 20160916
